FAERS Safety Report 21421425 (Version 1)
Quarter: 2022Q4

REPORT INFORMATION
  Report Type: Report from Study
  Country: US (occurrence: US)
  Receive Date: 20221007
  Receipt Date: 20221007
  Transmission Date: 20230113
  Serious: Yes (Other)
  Sender: FDA-Public Use
  Company Number: US-BRISTOL-MYERS SQUIBB COMPANY-2022-111269

PATIENT
  Age: 61 Year
  Sex: Female
  Weight: 59.3 kg

DRUGS (2)
  1. NIVOLUMAB [Suspect]
     Active Substance: NIVOLUMAB
     Indication: Soft tissue neoplasm
     Route: 065
     Dates: start: 20220823, end: 20220823
  2. PACLITAXEL [Suspect]
     Active Substance: PACLITAXEL
     Indication: Soft tissue neoplasm
     Route: 065
     Dates: start: 20220823, end: 20220906

REACTIONS (1)
  - Capillary leak syndrome [Recovering/Resolving]

NARRATIVE: CASE EVENT DATE: 20220909
